FAERS Safety Report 5284474-2 (Version None)
Quarter: 2007Q1

REPORT INFORMATION
  Report Type: 
  Country: None (occurrence: None)
  Receive Date: 20070330
  Receipt Date: 20070330
  Transmission Date: 20070707
  Serious: Yes (Other)
  Sender: FDA-Public Use
  Company Number: None

PATIENT
  Age: 56 Year
  Sex: Female
  Weight: 72.5755 kg

DRUGS (2)
  1. KLONOPIN [Suspect]
     Indication: NERVOUSNESS
     Dosage: ONE TABLET 2XDAILY PO
     Route: 048
     Dates: start: 20060801, end: 20061226
  2. ALPRAZOLAM [Suspect]
     Indication: NERVOUSNESS
     Dosage: ONE TABLET 3XDAILY PO
     Route: 048
     Dates: start: 20061227, end: 20070310

REACTIONS (7)
  - ANXIETY [None]
  - DISORIENTATION [None]
  - DRUG WITHDRAWAL SYNDROME [None]
  - HYPERHIDROSIS [None]
  - HYPERSENSITIVITY [None]
  - LOSS OF EMPLOYMENT [None]
  - PALPITATIONS [None]
